FAERS Safety Report 8909697 (Version 3)
Quarter: 2013Q1

REPORT INFORMATION
  Report Type: Report from Study
  Country: FR (occurrence: FR)
  Receive Date: 20121115
  Receipt Date: 20130204
  Transmission Date: 20140127
  Serious: Yes (Other)
  Sender: FDA-Public Use
  Company Number: FR-GENZYME-CAMP-1002509

PATIENT
  Age: 68 Year
  Sex: Female

DRUGS (8)
  1. CAMPATH [Suspect]
     Indication: CHRONIC LYMPHOCYTIC LEUKAEMIA RECURRENT
     Dosage: 30 MG, 3X/W
     Route: 058
     Dates: start: 20120626, end: 20120807
  2. CAMPATH [Suspect]
     Dosage: UNK
     Route: 065
     Dates: start: 20120817, end: 20120904
  3. CAMPATH [Suspect]
     Dosage: UNK
     Route: 065
     Dates: start: 20120910
  4. STACID [Concomitant]
     Indication: DIABETES MELLITUS
     Dosage: UNK
     Route: 065
  5. LEVEMIR [Concomitant]
     Indication: DIABETES MELLITUS
     Dosage: UNK
     Route: 065
  6. PRAVASTATIN [Concomitant]
     Indication: HYPERCHOLESTEROLAEMIA
     Dosage: UNK
     Route: 065
  7. ADENURIC [Concomitant]
     Indication: HYPERURICAEMIA
     Dosage: UNK
     Route: 065
  8. LYRICA [Concomitant]
     Indication: PRODUCT USED FOR UNKNOWN INDICATION
     Dosage: UNK
     Route: 065

REACTIONS (4)
  - Cytomegalovirus test positive [Recovered/Resolved]
  - Cytomegalovirus test positive [Unknown]
  - Neutropenia [Recovered/Resolved]
  - Anaemia [Recovered/Resolved]
